FAERS Safety Report 11260876 (Version 2)
Quarter: 2015Q3

REPORT INFORMATION
  Report Type: Spontaneous
  Country: JP (occurrence: JP)
  Receive Date: 20150710
  Receipt Date: 20150918
  Transmission Date: 20151125
  Serious: Yes (Other)
  Sender: FDA-Public Use
  Company Number: JP-GSKJP-JP2015JPN097814AA

PATIENT
  Sex: Male

DRUGS (17)
  1. MIRAPEX-LA [Concomitant]
     Dosage: 1.5 MG, QD
  2. COMTAN [Concomitant]
     Active Substance: ENTACAPONE
  3. TAMSULOSIN HYDROCHLORIDE OD [Concomitant]
     Active Substance: TAMSULOSIN HYDROCHLORIDE
  4. ALLELOCK [Concomitant]
     Active Substance: OLOPATADINE HYDROCHLORIDE
  5. DOPS OD [Concomitant]
     Active Substance: DROXIDOPA
  6. MENESIT [Concomitant]
     Active Substance: CARBIDOPA\LEVODOPA
  7. PREDONINE [Concomitant]
     Active Substance: PREDNISOLONE\PREDNISOLONE ACETATE\PREDNISOLONE SODIUM SUCCINATE
  8. TENELIA [Concomitant]
     Active Substance: CITALOPRAM HYDROBROMIDE
  9. REQUIP [Suspect]
     Active Substance: ROPINIROLE HYDROCHLORIDE
     Indication: PROGRESSIVE SUPRANUCLEAR PALSY
     Dosage: 8 MG, QD
     Route: 048
     Dates: start: 20150316
  10. MAGNESIUM OXIDE. [Concomitant]
     Active Substance: MAGNESIUM OXIDE
  11. BONALON [Concomitant]
     Active Substance: ALENDRONATE SODIUM
  12. MINOMYCIN [Concomitant]
     Active Substance: MINOCYCLINE HYDROCHLORIDE
  13. VOGLIBOSE OD [Concomitant]
     Active Substance: VOGLIBOSE
  14. HUMALOG [Concomitant]
     Active Substance: INSULIN LISPRO
  15. NOURIAST [Concomitant]
     Active Substance: ISTRADEFYLLINE
  16. NEXIUM [Concomitant]
     Active Substance: ESOMEPRAZOLE MAGNESIUM
  17. NICOTINAMIDE [Concomitant]
     Active Substance: NIACINAMIDE

REACTIONS (1)
  - Sudden onset of sleep [Unknown]
